FAERS Safety Report 24581359 (Version 2)
Quarter: 2024Q4

REPORT INFORMATION
  Report Type: Report from Study
  Country: BR (occurrence: BR)
  Receive Date: 20241105
  Receipt Date: 20241112
  Transmission Date: 20250114
  Serious: Yes (Death)
  Sender: NOVARTIS
  Company Number: BR-002147023-NVSC2024BR213897

PATIENT
  Age: 36 Year
  Sex: Male
  Weight: 66 kg

DRUGS (6)
  1. DABRAFENIB [Suspect]
     Active Substance: DABRAFENIB
     Indication: BRAF gene mutation
     Dosage: 150 MG (2 TABLETS OF 75 MG), Q12H
     Route: 048
     Dates: start: 20240816, end: 20240924
  2. DABRAFENIB [Suspect]
     Active Substance: DABRAFENIB
     Indication: EGFR gene mutation
  3. DABRAFENIB [Suspect]
     Active Substance: DABRAFENIB
     Indication: Lung adenocarcinoma
  4. TRAMETINIB [Suspect]
     Active Substance: TRAMETINIB
     Indication: BRAF gene mutation
     Dosage: 2 MG, QD
     Route: 048
     Dates: start: 20240816, end: 20240924
  5. TRAMETINIB [Suspect]
     Active Substance: TRAMETINIB
     Indication: EGFR gene mutation
  6. TRAMETINIB [Suspect]
     Active Substance: TRAMETINIB
     Indication: Lung adenocarcinoma

REACTIONS (6)
  - Lymphangiosis carcinomatosa [Fatal]
  - Malignant neoplasm progression [Fatal]
  - Drug ineffective [Fatal]
  - Pleural disorder [Unknown]
  - Disease progression [Unknown]
  - Dyspnoea [Unknown]

NARRATIVE: CASE EVENT DATE: 20240924
